FAERS Safety Report 6105460-6 (Version None)
Quarter: 2009Q1

REPORT INFORMATION
  Report Type: 
  Country: None (occurrence: None)
  Receive Date: 20090306
  Receipt Date: 20090227
  Transmission Date: 20090719
  Serious: Yes (Death, Hospitalization)
  Sender: FDA-Public Use
  Company Number: A0754660A

PATIENT
  Age: 76 Year
  Sex: Male
  Weight: 97.7 kg

DRUGS (10)
  1. AVANDIA [Suspect]
     Dosage: 4MG PER DAY
     Route: 048
     Dates: start: 20060713, end: 20060731
  2. NOVOLIN [Concomitant]
  3. ZOCOR [Concomitant]
  4. LASIX [Concomitant]
     Dates: start: 20060531, end: 20060731
  5. SPIRONOLACTONE [Concomitant]
     Dates: start: 20060703, end: 20060731
  6. ELAVIL [Concomitant]
     Dates: start: 20060724, end: 20060731
  7. LEVOTHYROXINE SODIUM [Concomitant]
  8. WARFARIN SODIUM [Concomitant]
  9. CENTRUM [Concomitant]
  10. TYLENOL (CAPLET) [Concomitant]

REACTIONS (1)
  - MYOCARDIAL INFARCTION [None]
